FAERS Safety Report 7270342-3 (Version None)
Quarter: 2011Q1

REPORT INFORMATION
  Report Type: 
  Country: None (occurrence: None)
  Receive Date: 20110202
  Receipt Date: 20110131
  Transmission Date: 20110831
  Serious: Yes (Hospitalization)
  Sender: FDA-Public Use
  Company Number: FR-ABBOTT-11P-056-0699147-00

PATIENT
  Age: 61 Year
  Sex: Male

DRUGS (8)
  1. GENTAMICIN [Suspect]
     Indication: INTERVERTEBRAL DISCITIS
  2. CLAMOXYL [Concomitant]
     Indication: ENDOCARDITIS
     Route: 042
     Dates: start: 20070904
  3. MONO-TILDIEM LP [Suspect]
     Indication: HYPERTENSION
     Route: 048
     Dates: end: 20070917
  4. ALFUZOSIN HCL [Suspect]
     Indication: BENIGN PROSTATIC HYPERPLASIA
     Route: 048
  5. CLAMOXYL [Concomitant]
     Indication: INTERVERTEBRAL DISCITIS
  6. GENTAMICIN [Suspect]
     Indication: ENDOCARDITIS
     Dosage: DURATION: 1 WEEK 1 DAY
     Route: 042
     Dates: start: 20070704, end: 20070911
  7. PREVISCAN [Suspect]
     Indication: ARRHYTHMIA
     Route: 048
  8. LIPANTHYL [Suspect]
     Indication: DYSLIPIDAEMIA
     Route: 048
     Dates: end: 20070917

REACTIONS (1)
  - RENAL FAILURE ACUTE [None]
